FAERS Safety Report 7579964-3 (Version None)
Quarter: 2011Q2

REPORT INFORMATION
  Report Type: 
  Country: None (occurrence: None)
  Receive Date: 20110629
  Receipt Date: 20110621
  Transmission Date: 20111010
  Serious: Yes (Hospitalization, Other)
  Sender: FDA-Public Use
  Company Number: JP-ABBOTT-11P-087-0734227-00

PATIENT
  Sex: Male

DRUGS (5)
  1. HUMIRA [Suspect]
     Indication: CROHN'S DISEASE
     Route: 058
     Dates: start: 20110419, end: 20110419
  2. CLOSTRIDIUM BUTYRICUM [Concomitant]
     Indication: CROHN'S DISEASE
     Dosage: DAILY DOSE: 4 DOSAGE FORMS
     Route: 048
  3. HUMIRA [Suspect]
  4. HUMIRA [Suspect]
     Dates: end: 20110614
  5. MESALAMINE [Concomitant]
     Indication: CROHN'S DISEASE
     Dosage: DAILY DOSE: 3000MG
     Route: 048

REACTIONS (2)
  - ABDOMINAL PAIN [None]
  - INTESTINAL PERFORATION [None]
